FAERS Safety Report 6888468-2 (Version None)
Quarter: 2010Q3

REPORT INFORMATION
  Report Type: 
  Country: None (occurrence: None)
  Receive Date: 20100730
  Receipt Date: 20100719
  Transmission Date: 20110219
  Serious: Yes (Hospitalization, Other)
  Sender: FDA-Public Use
  Company Number: PHHY2010CH46989

PATIENT
  Age: 65 Year
  Sex: Male

DRUGS (2)
  1. CYCLOSPORINE [Suspect]
     Indication: HEART TRANSPLANT
  2. EVEROLIMUS [Concomitant]

REACTIONS (10)
  - CYTOMEGALOVIRUS INFECTION [None]
  - DYSPNOEA [None]
  - HUMAN HERPESVIRUS 8 INFECTION [None]
  - HYPERTRICHOSIS [None]
  - KAPOSI'S SARCOMA [None]
  - LUNG NEOPLASM [None]
  - LUNG WEDGE RESECTION [None]
  - PULMONARY OEDEMA [None]
  - SPINDLE CELL SARCOMA [None]
  - URINE OUTPUT DECREASED [None]
